FAERS Safety Report 8123941 (Version 5)
Quarter: 2013Q2

REPORT INFORMATION
  Report Type: Report from Study
  Country: AT (occurrence: AT)
  Receive Date: 20110907
  Receipt Date: 20130517
  Transmission Date: 20140414
  Serious: Yes (Death, Other)
  Sender: FDA-Public Use
  Company Number: AT-CELGENEUS-009-50794-11090210

PATIENT
  Sex: 0

DRUGS (5)
  1. VIDAZA [Suspect]
     Indication: ACUTE MYELOID LEUKAEMIA
     Route: 065
     Dates: start: 200702, end: 201107
  2. VIDAZA [Suspect]
     Indication: CHRONIC MYELOMONOCYTIC LEUKAEMIA
     Route: 065
     Dates: start: 200702, end: 201202
  3. G-CSF [Concomitant]
     Indication: PRODUCT USED FOR UNKNOWN INDICATION
     Route: 065
  4. ERYTHROPOIESIS STIMULATING AGENTS [Concomitant]
     Indication: PRODUCT USED FOR UNKNOWN INDICATION
     Route: 065
  5. INTEGRATIVE CANCER TREATMENT [Concomitant]
     Indication: PRODUCT USED FOR UNKNOWN INDICATION
     Route: 065

REACTIONS (43)
  - Death [Fatal]
  - Myocardial ischaemia [Unknown]
  - Fracture [Unknown]
  - Fall [Unknown]
  - Left ventricular failure [Unknown]
  - Acute myeloid leukaemia [Unknown]
  - Cardiac disorder [Unknown]
  - Neoplasm [Unknown]
  - Arrhythmia [Unknown]
  - Sepsis [Unknown]
  - Infection [Unknown]
  - Haemorrhage [Unknown]
  - Liver disorder [Unknown]
  - Renal disorder [Unknown]
  - Embolism [Unknown]
  - Thrombocytopenia [Unknown]
  - Neutropenia [Unknown]
  - Anaemia [Unknown]
  - Infection [Unknown]
  - Haemorrhage [Unknown]
  - Febrile neutropenia [Unknown]
  - Lung infection [Unknown]
  - Blood pressure abnormal [Unknown]
  - Nervous system disorder [Unknown]
  - Cytomegalovirus infection [Unknown]
  - Upper respiratory tract infection [Unknown]
  - Gastrointestinal infection [Unknown]
  - Urinary tract infection [Unknown]
  - Herpes simplex [Unknown]
  - Abscess [Unknown]
  - Device related infection [Unknown]
  - Pyrexia [Unknown]
  - Nausea [Unknown]
  - Vomiting [Unknown]
  - Constipation [Unknown]
  - Diarrhoea [Unknown]
  - Fatigue [Unknown]
  - Pain [Unknown]
  - Metabolic disorder [Unknown]
  - Injection site reaction [Unknown]
  - Gastrointestinal disorder [Unknown]
  - Disease progression [Unknown]
  - No therapeutic response [Unknown]
